FAERS Safety Report 18695265 (Version 1)
Quarter: 2021Q1

REPORT INFORMATION
  Report Type: Spontaneous
  Country: US (occurrence: US)
  Receive Date: 20210102
  Receipt Date: 20210102
  Transmission Date: 20210419
  Serious: Yes (Death)
  Sender: FDA-Public Use
  Company Number: None

PATIENT
  Age: 49 Year
  Sex: Male
  Weight: 78.3 kg

DRUGS (5)
  1. FLUCONAZOLE. [Suspect]
     Active Substance: FLUCONAZOLE
     Indication: GASTRIC INFECTION
     Dosage: ?          QUANTITY:20 TABLET(S);OTHER FREQUENCY:1T QD FOR 10 DAYS;?
     Dates: start: 20191209, end: 20191214
  2. CORTISONE [Suspect]
     Active Substance: CORTISONE
  3. PREDNISONE. [Suspect]
     Active Substance: PREDNISONE
     Dosage: ?          QUANTITY:8 TABLET(S);?
     Dates: start: 20191212, end: 20191214
  4. FLUCONAZOLE. [Suspect]
     Active Substance: FLUCONAZOLE
     Indication: FEELING COLD
     Dosage: ?          QUANTITY:20 TABLET(S);OTHER FREQUENCY:1T QD FOR 10 DAYS;?
     Dates: start: 20191209, end: 20191214
  5. SERTRALINE [Suspect]
     Active Substance: SERTRALINE HYDROCHLORIDE

REACTIONS (12)
  - Rosacea [None]
  - Hallucination [None]
  - Pain [None]
  - Hypersensitivity [None]
  - Prescribed overdose [None]
  - Arthralgia [None]
  - Insomnia [None]
  - Gastric infection [None]
  - Skin exfoliation [None]
  - Hanging [None]
  - Facial asymmetry [None]
  - Herpes zoster [None]

NARRATIVE: CASE EVENT DATE: 20191214
